FAERS Safety Report 19908037 (Version 3)
Quarter: 2021Q4

REPORT INFORMATION
  Report Type: Report from Study
  Country: GR (occurrence: GR)
  Receive Date: 20210930
  Receipt Date: 20211121
  Transmission Date: 20220303
  Serious: Yes (Death, Hospitalization, Other)
  Sender: FDA-Public Use
  Company Number: GR-ABBVIE-21K-066-4099334-00

PATIENT
  Age: 79 Year
  Sex: Male

DRUGS (8)
  1. CARBIDOPA\LEVODOPA [Suspect]
     Active Substance: CARBIDOPA\LEVODOPA
     Indication: Parkinson^s disease
     Dosage: MORNING DOSE: 12 ML; CONTINUOUS RATE: 6.1 ML/H; EXTRA DOSE: 3.5 ML, 20 MG/ML 5 MG/ML
     Route: 050
     Dates: start: 201311, end: 20210926
  2. CARBIDOPA\LEVODOPA [Suspect]
     Active Substance: CARBIDOPA\LEVODOPA
     Dosage: 20 MG/5 ML?MORNING DOSE: 12 ML, CONTINUOUS RATE: 6.1 ML/H, EXTRA DOSE: 3.5 ML
     Route: 050
     Dates: start: 20211004
  3. BENSERAZIDE HYDROCHLORIDE\LEVODOPA [Concomitant]
     Active Substance: BENSERAZIDE HYDROCHLORIDE\LEVODOPA
     Indication: Parkinson^s disease
     Dosage: UNIT DOSE: (375 + 75) MG; FORM STRENGTH: (250 + 50) MG
     Route: 048
  4. FEXOR [Concomitant]
     Indication: Depression
     Route: 048
  5. ZOLPIDEM TARTRATE [Concomitant]
     Active Substance: ZOLPIDEM TARTRATE
     Indication: Sedative therapy
     Route: 048
  6. CLOZAPINE [Concomitant]
     Active Substance: CLOZAPINE
     Indication: Hallucination
     Route: 048
  7. LEVOMEPROMAZINE [Concomitant]
     Active Substance: LEVOMEPROMAZINE
     Indication: Hallucination
     Dosage: UNIT DOSE: 12.5 MG , FORM STRENGTH: 25 MG
     Route: 048
  8. SILODOSIN [Concomitant]
     Active Substance: SILODOSIN
     Indication: Benign prostatic hyperplasia
     Route: 048

REACTIONS (7)
  - Death [Fatal]
  - Colon neoplasm [Unknown]
  - Aspiration [Unknown]
  - Neoplasm malignant [Unknown]
  - Dyspnoea [Unknown]
  - Pneumonia [Not Recovered/Not Resolved]
  - Ileus [Unknown]

NARRATIVE: CASE EVENT DATE: 20210926
